FAERS Safety Report 20749434 (Version 1)
Quarter: 2022Q2

REPORT INFORMATION
  Report Type: Spontaneous
  Country: US (occurrence: None)
  Receive Date: 20220425
  Receipt Date: 20220425
  Transmission Date: 20220721
  Serious: Yes (Death, Hospitalization, Other)
  Sender: FDA-Public Use
  Company Number: None

PATIENT
  Sex: Male
  Weight: 72.6 kg

DRUGS (1)
  1. YESCARTA [Suspect]
     Active Substance: AXICABTAGENE CILOLEUCEL
     Indication: Diffuse large B-cell lymphoma
     Route: 042
     Dates: start: 20220301, end: 20220301

REACTIONS (9)
  - Upper gastrointestinal haemorrhage [None]
  - Tachycardia [None]
  - Hypotension [None]
  - Acute respiratory failure [None]
  - Neurotoxicity [None]
  - Arrhythmia [None]
  - Multiple organ dysfunction syndrome [None]
  - Cytokine release syndrome [None]
  - Ejection fraction decreased [None]
